FAERS Safety Report 6100449-5 (Version None)
Quarter: 2009Q1

REPORT INFORMATION
  Report Type: 
  Country: None (occurrence: None)
  Receive Date: 20090226
  Receipt Date: 20090220
  Transmission Date: 20090719
  Serious: Yes (Life-Threatening)
  Sender: FDA-Public Use
  Company Number: APP200900090

PATIENT

DRUGS (2)
  1. HEPARIN SODIUM INJECTION [Suspect]
     Indication: CARDIOPULMONARY BYPASS
     Dosage: INJECTION
  2. HEPARIN SODIUM INJECTION [Suspect]

REACTIONS (1)
  - ANAPHYLACTIC REACTION [None]
